FAERS Safety Report 6703492-8 (Version None)
Quarter: 2010Q2

REPORT INFORMATION
  Report Type: 
  Country: None (occurrence: None)
  Receive Date: 20100428
  Receipt Date: 20100422
  Transmission Date: 20101027
  Serious: Yes (Other)
  Sender: FDA-Public Use
  Company Number: 2010SP007751

PATIENT
  Age: 46 Year
  Sex: Female

DRUGS (3)
  1. DESLORATADINE [Suspect]
     Indication: URTICARIA CHRONIC
     Dosage: 1 DF;QD;PO
     Route: 048
     Dates: start: 20081001, end: 20091201
  2. ATARAX [Suspect]
     Indication: URTICARIA CHRONIC
     Dosage: 25 MG;QD;PO, 25 MG;QD;PO
     Route: 048
     Dates: start: 20081001, end: 20090301
  3. ATARAX [Suspect]
     Indication: URTICARIA CHRONIC
     Dosage: 25 MG;QD;PO, 25 MG;QD;PO
     Route: 048
     Dates: start: 20090301, end: 20090901

REACTIONS (3)
  - EXTRAPYRAMIDAL DISORDER [None]
  - MUSCULOSKELETAL STIFFNESS [None]
  - MYALGIA [None]
